FAERS Safety Report 16305998 (Version 2)
Quarter: 2019Q2

REPORT INFORMATION
  Report Type: Spontaneous
  Country: GB (occurrence: GB)
  Receive Date: 20190513
  Receipt Date: 20190603
  Transmission Date: 20190711
  Serious: Yes (Hospitalization, Other)
  Sender: FDA-Public Use
  Company Number: GB-OTSUKA-2019_017893

PATIENT
  Sex: Male
  Weight: 104 kg

DRUGS (1)
  1. TOLVAPTAN [Suspect]
     Active Substance: TOLVAPTAN
     Indication: CONGENITAL CYSTIC KIDNEY DISEASE
     Dosage: UNK UNK, QD
     Route: 048
     Dates: start: 201701

REACTIONS (2)
  - Salivary gland cancer [Recovered/Resolved]
  - Metastases to lymph nodes [Recovered/Resolved]
